FAERS Safety Report 17875898 (Version 1)
Quarter: 2020Q2

REPORT INFORMATION
  Report Type: Spontaneous
  Country: US (occurrence: US)
  Receive Date: 20200609
  Receipt Date: 20200609
  Transmission Date: 20200714
  Serious: No
  Sender: FDA-Public Use
  Company Number: None

PATIENT
  Age: 60 Year
  Sex: Female
  Weight: 151.65 kg

DRUGS (16)
  1. CAPECITABINE. [Suspect]
     Active Substance: CAPECITABINE
     Indication: BREAST CANCER FEMALE
     Dosage: ?          OTHER FREQUENCY:BID 2WKS/OFF 1 WK;?
     Route: 048
     Dates: start: 20200304, end: 20200609
  2. ZOFRAN 8MG [Concomitant]
  3. LASIX 20MG AND 40MG [Concomitant]
  4. METFORMIN 500MG [Concomitant]
     Active Substance: METFORMIN HYDROCHLORIDE
  5. PROAIR HFA [Concomitant]
     Active Substance: ALBUTEROL SULFATE
  6. ISOPTO TEARS [Concomitant]
     Active Substance: HYPROMELLOSE 2910 (4000 MPA.S)
  7. OSTEO BI-FLEX 250-200MG [Concomitant]
  8. TRELEGY ELLIPTA [Concomitant]
     Active Substance: FLUTICASONE FUROATE\UMECLIDINIUM BROMIDE\VILANTEROL TRIFENATATE
  9. LISINOPRIL 10MG [Concomitant]
     Active Substance: LISINOPRIL
  10. ACETAMINOPHEN 650MG [Concomitant]
  11. ARTIFICIAL TEARS [Concomitant]
     Active Substance: GLYCERIN\HYPROMELLOSES\POLYETHYLENE GLYCOL 400
  12. VITAMIN D 1.25MG [Concomitant]
  13. INJECTAFER [Concomitant]
     Active Substance: FERRIC CARBOXYMALTOSE
  14. ALBUTEROL-IPRATROPIUM [Concomitant]
     Active Substance: ALBUTEROL\IPRATROPIUM
  15. METOPROLOL 25MG [Concomitant]
     Active Substance: METOPROLOL
  16. NEURONTIN 300MG [Concomitant]

REACTIONS (2)
  - Disease progression [None]
  - Therapy cessation [None]

NARRATIVE: CASE EVENT DATE: 20200609
